FAERS Safety Report 9914262 (Version 1)
Quarter: 2014Q1

REPORT INFORMATION
  Report Type: Report from Study
  Country: CA (occurrence: CA)
  Receive Date: 20140220
  Receipt Date: 20140220
  Transmission Date: 20141002
  Serious: Yes (Hospitalization)
  Sender: FDA-Public Use
  Company Number: CA-BRISTOL-MYERS SQUIBB COMPANY-20190765

PATIENT
  Age: 59 Year
  Sex: Male

DRUGS (10)
  1. ORENCIA [Suspect]
     Indication: RHEUMATOID ARTHRITIS
     Dosage: 1DF: 750 UNIT: NOS
     Dates: start: 20130919
  2. PLAQUENIL [Concomitant]
  3. CELEBREX [Concomitant]
  4. PREDNISONE [Concomitant]
  5. ZOLOFT [Concomitant]
  6. ABILIFY [Concomitant]
  7. ATIVAN [Concomitant]
  8. ZOPICLONE [Concomitant]
  9. SENOKOT [Concomitant]
  10. ZYPREXA [Concomitant]

REACTIONS (1)
  - Major depression [Unknown]
